FAERS Safety Report 25739976 (Version 2)
Quarter: 2025Q4

REPORT INFORMATION
  Report Type: Spontaneous
  Country: EU (occurrence: EU)
  Receive Date: 20250829
  Receipt Date: 20251028
  Transmission Date: 20260118
  Serious: Yes (Other)
  Sender: MYLAN
  Company Number: EU-MYLANLABS-2025M1072814

PATIENT
  Age: 70 Year
  Sex: Male

DRUGS (12)
  1. GEMCITABINE [Suspect]
     Active Substance: GEMCITABINE
     Indication: Ductal adenocarcinoma of pancreas
     Dosage: UNK
  2. FLUOROURACIL [Suspect]
     Active Substance: FLUOROURACIL
     Indication: Ductal adenocarcinoma of pancreas
     Dosage: UNK, PART OF FOLFIRINOX REGIMEN
  3. PACLITAXEL [Suspect]
     Active Substance: PACLITAXEL
     Indication: Ductal adenocarcinoma of pancreas
     Dosage: 300 MILLIGRAM, BIWEEKLY, THERAPY COMPLETED
     Dates: start: 202008, end: 202201
  4. IRINOTECAN [Suspect]
     Active Substance: IRINOTECAN
     Indication: Ductal adenocarcinoma of pancreas
     Dosage: UNK, PART OF FOLFIRINOX REGIMEN
  5. IRINOTECAN [Suspect]
     Active Substance: IRINOTECAN
     Indication: Metastases to liver
     Dosage: 129 MILLIGRAM, RECEIVED ON DAY 1 OF EACH 14 DAY CYCLE
  6. IRINOTECAN [Suspect]
     Active Substance: IRINOTECAN
     Dosage: 129 MILLIGRAM, RECEIVED ON DAY 1 OF EACH 21 DAY CYCLE
  7. CAPECITABINE [Suspect]
     Active Substance: CAPECITABINE
     Indication: Ductal adenocarcinoma of pancreas
     Dosage: 4000 MILLIGRAM, QD, FOR THE FIRST 7 DAYS OF EACH 14 DAY CYCLE
     Dates: start: 202201
  8. CAPECITABINE [Suspect]
     Active Substance: CAPECITABINE
     Indication: Metastases to liver
     Dosage: 4000 MILLIGRAM, QD, FOR THE FIRST 7 DAYS OF EACH 21 DAY CYCLE
     Dates: start: 202305, end: 202402
  9. DOXORUBICIN [Suspect]
     Active Substance: DOXORUBICIN
     Indication: Ductal adenocarcinoma of pancreas
     Dosage: 80 MILLIGRAM, UNDERWENT TRANS ARTERIAL CHEMOEMBOLIZATION USING DOXORUBICIN, TRANS-ARTERIAL
  10. DOXORUBICIN [Suspect]
     Active Substance: DOXORUBICIN
     Indication: Metastases to liver
  11. LEUCOVORIN [Concomitant]
     Active Substance: LEUCOVORIN\LEUCOVORIN CALCIUM
     Indication: Ductal adenocarcinoma of pancreas
     Dosage: UNK, CYCLE, PART OF FOLFIRINOX REGIMEN, RECEIVED TOTAL 9 CYCLES, EACH CYCLE LASTED 14 DAYS AND ADMINISTERED OVER THE FIRST 2 DAYS OF EACH CYCLE, FOLLOWED BY A 12 DAY BREAK.
     Dates: start: 201809, end: 201901
  12. OXALIPLATIN [Concomitant]
     Active Substance: OXALIPLATIN
     Indication: Ductal adenocarcinoma of pancreas
     Dosage: UNK, CYCLE, PART OF FOLFIRINOX REGIMEN, RECEIVED TOTAL 9 CYCLES, EACH CYCLE...
     Dates: start: 201809, end: 201901

REACTIONS (7)
  - Drug intolerance [Unknown]
  - Colitis [Unknown]
  - Diarrhoea [Unknown]
  - Gastrointestinal toxicity [Unknown]
  - Drug ineffective [Unknown]
  - Toxicity to various agents [Unknown]
  - Off label use [Unknown]
